FAERS Safety Report 21471720 (Version 4)
Quarter: 2024Q2

REPORT INFORMATION
  Report Type: Spontaneous
  Country: US (occurrence: US)
  Receive Date: 20221018
  Receipt Date: 20240514
  Transmission Date: 20240715
  Serious: No
  Sender: FDA-Public Use
  Company Number: US-009507513-2210USA003746

PATIENT
  Sex: Female

DRUGS (13)
  1. KEYTRUDA [Suspect]
     Active Substance: PEMBROLIZUMAB
     Indication: Lung neoplasm malignant
     Dosage: UNK, EVERY 3 WEEKS (Q3W); IV INFUSION
     Route: 042
     Dates: start: 2022, end: 202312
  2. SYNTHROID [Concomitant]
     Active Substance: LEVOTHYROXINE SODIUM
     Dosage: UNK
  3. DIGOXIN [Concomitant]
     Active Substance: DIGOXIN
     Dosage: UNK
  4. PACLITAXEL [Concomitant]
     Active Substance: PACLITAXEL
  5. IRON [Concomitant]
     Active Substance: IRON
  6. CLONAZEPAM [Concomitant]
     Active Substance: CLONAZEPAM
  7. VITAMINS [Concomitant]
     Active Substance: VITAMINS
  8. VITAMIN C [Concomitant]
     Active Substance: ASCORBIC ACID
  9. THEOPHYLLINE [Concomitant]
     Active Substance: THEOPHYLLINE
  10. METOPROLOL [Concomitant]
     Active Substance: METOPROLOL
  11. DILTIAZEM [Concomitant]
     Active Substance: DILTIAZEM
  12. PAROXETINE [Concomitant]
     Active Substance: PAROXETINE
  13. ELIQUIS [Concomitant]
     Active Substance: APIXABAN

REACTIONS (21)
  - Rash [Not Recovered/Not Resolved]
  - Rash pruritic [Unknown]
  - Alopecia [Not Recovered/Not Resolved]
  - Oral candidiasis [Recovering/Resolving]
  - Weight decreased [Unknown]
  - Papule [Not Recovered/Not Resolved]
  - Pruritus [Not Recovered/Not Resolved]
  - Skin disorder [Not Recovered/Not Resolved]
  - Muscle disorder [Not Recovered/Not Resolved]
  - Malaise [Not Recovered/Not Resolved]
  - Pain [Not Recovered/Not Resolved]
  - Red blood cell count decreased [Not Recovered/Not Resolved]
  - Dry skin [Not Recovered/Not Resolved]
  - Skin mass [Not Recovered/Not Resolved]
  - Rash pruritic [Not Recovered/Not Resolved]
  - Skin mass [Not Recovered/Not Resolved]
  - Skin exfoliation [Not Recovered/Not Resolved]
  - Diarrhoea [Not Recovered/Not Resolved]
  - Abdominal distension [Not Recovered/Not Resolved]
  - Weight fluctuation [Not Recovered/Not Resolved]
  - Decreased appetite [Not Recovered/Not Resolved]

NARRATIVE: CASE EVENT DATE: 20230101
